FAERS Safety Report 12861118 (Version 3)
Quarter: 2017Q1

REPORT INFORMATION
  Report Type: Report from Study
  Country: FR (occurrence: FR)
  Receive Date: 20161019
  Receipt Date: 20170103
  Transmission Date: 20170428
  Serious: Yes (Disabling)
  Sender: FDA-Public Use
  Company Number: PHHO2016FR014945

PATIENT
  Age: 26 Year
  Sex: Male
  Weight: 83 kg

DRUGS (12)
  1. PARACETAMOL [Concomitant]
     Active Substance: ACETAMINOPHEN
     Indication: TONSILLITIS
     Dosage: UNK
     Route: 065
     Dates: start: 20131110, end: 20131117
  2. PARACETAMOL [Concomitant]
     Active Substance: ACETAMINOPHEN
     Indication: ARTHRALGIA
  3. IBUPROFENE [Concomitant]
     Active Substance: IBUPROFEN
     Indication: NASOPHARYNGITIS
     Dosage: UNK
     Route: 065
     Dates: start: 20131003, end: 20131010
  4. AMOXICILLINE [Concomitant]
     Active Substance: AMOXICILLIN
     Indication: PRODUCT USED FOR UNKNOWN INDICATION
     Dosage: UNK
     Route: 065
     Dates: start: 20131110, end: 20131117
  5. IBUPROFENE [Concomitant]
     Active Substance: IBUPROFEN
     Indication: TONSILLITIS
     Dosage: UNK
     Route: 065
     Dates: start: 20131110, end: 20131117
  6. AMN107 [Suspect]
     Active Substance: NILOTINIB
     Indication: CHRONIC MYELOID LEUKAEMIA
     Dosage: 600
     Route: 048
     Dates: start: 20101210, end: 20140722
  7. ALPROSTADIL. [Concomitant]
     Active Substance: ALPROSTADIL
     Indication: ERECTILE DYSFUNCTION
     Dosage: UNK
     Route: 065
     Dates: start: 20110216
  8. IBUPROFENE [Concomitant]
     Active Substance: IBUPROFEN
     Indication: RHINITIS
     Dosage: UNK
     Route: 065
     Dates: start: 20131205, end: 20131210
  9. KARDEGIC [Concomitant]
     Active Substance: ASPIRIN LYSINE
     Indication: HAEMATOCRIT INCREASED
     Dosage: UNK
     Route: 065
     Dates: start: 20140813, end: 20141012
  10. PHOSPHORE [Concomitant]
     Indication: PRODUCT USED FOR UNKNOWN INDICATION
     Dosage: UNK
     Route: 065
     Dates: start: 20120627, end: 20140911
  11. PARACETAMOL [Concomitant]
     Active Substance: ACETAMINOPHEN
     Indication: RHINITIS
  12. VOLTARENE [Concomitant]
     Active Substance: DICLOFENAC SODIUM
     Indication: ARTHRALGIA
     Dosage: UNK
     Route: 065
     Dates: start: 20140216, end: 20140221

REACTIONS (1)
  - Osteonecrosis [Recovered/Resolved]

NARRATIVE: CASE EVENT DATE: 201603
